FAERS Safety Report 15539019 (Version 3)
Quarter: 2018Q4

REPORT INFORMATION
  Report Type: Spontaneous
  Country: FR (occurrence: FR)
  Receive Date: 20181022
  Receipt Date: 20181029
  Transmission Date: 20190205
  Serious: Yes (Death, Other)
  Sender: FDA-Public Use
  Company Number: FR-PFIZER INC-2018428473

PATIENT
  Age: 84 Year
  Sex: Male
  Weight: 45 kg

DRUGS (10)
  1. PANTOPRAZOLE [Suspect]
     Active Substance: PANTOPRAZOLE
     Dosage: 40 MG, 1X/DAY
     Route: 042
     Dates: start: 20170923, end: 20171006
  2. PIPERACILLIN. [Suspect]
     Active Substance: PIPERACILLIN SODIUM
     Indication: SEPSIS
     Dosage: 12 G, 1X/DAY
     Route: 042
     Dates: start: 20170912, end: 20170925
  3. TRAMADOL HYDROCHLORIDE. [Suspect]
     Active Substance: TRAMADOL HYDROCHLORIDE
     Indication: PAIN
     Dosage: UNK
     Route: 042
     Dates: end: 20171004
  4. CORDARONE [Suspect]
     Active Substance: AMIODARONE HYDROCHLORIDE
     Indication: ATRIAL FIBRILLATION
     Dosage: 200 MG, 1X/DAY
     Route: 048
     Dates: start: 201708, end: 20170926
  5. CIPROFLOXACIN HYDROCHLORIDE. [Suspect]
     Active Substance: CIPROFLOXACIN HYDROCHLORIDE
     Indication: SEPSIS
     Dosage: 1000 MG, 1X/DAY
     Route: 048
     Dates: start: 20170912, end: 20170925
  6. TAZOBACTAM [Suspect]
     Active Substance: TAZOBACTAM
     Indication: SEPSIS
     Dosage: 1500 MG, 1X/DAY
     Route: 042
     Dates: start: 20170912, end: 20170925
  7. ATROVENT [Concomitant]
     Active Substance: IPRATROPIUM BROMIDE
     Dosage: UNK
  8. BISOPROLOL FUMARATE. [Suspect]
     Active Substance: BISOPROLOL FUMARATE
     Indication: MYOCARDIAL ISCHAEMIA
     Dosage: 2.5 MG, 1X/DAY
     Route: 048
     Dates: end: 20170925
  9. FRAGMINE [Suspect]
     Active Substance: DALTEPARIN SODIUM
     Dosage: 1 DF, DAILY
     Route: 058
     Dates: start: 20170922, end: 20171007
  10. FLUCONAZOLE. [Suspect]
     Active Substance: FLUCONAZOLE
     Indication: SEPSIS
     Dosage: 400 MG, 1X/DAY
     Route: 042
     Dates: start: 20170912, end: 20170925

REACTIONS (2)
  - Respiratory distress [Fatal]
  - Interstitial lung disease [Fatal]

NARRATIVE: CASE EVENT DATE: 20170925
